FAERS Safety Report 8535148-3 (Version None)
Quarter: 2012Q3

REPORT INFORMATION
  Report Type: 
  Country: None (occurrence: None)
  Receive Date: 20120724
  Receipt Date: 20120718
  Transmission Date: 20120928
  Serious: Yes (Other)
  Sender: FDA-Public Use
  Company Number: FR-PFIZER INC-2012172907

PATIENT
  Age: 77 Year
  Sex: Male

DRUGS (5)
  1. NAVELBINE [Suspect]
     Dosage: SECOND CYCLE
     Route: 042
     Dates: start: 20111214, end: 20111221
  2. ATORVASTATIN [Suspect]
     Dosage: 40 MG, 1X/DAY
     Route: 048
     Dates: end: 20120104
  3. NAVELBINE [Suspect]
     Indication: LUNG NEOPLASM MALIGNANT
     Dosage: FIRST CYCLE, DAYS 1 AND 8
     Route: 042
     Dates: start: 20110101
  4. CARBOPLATIN [Suspect]
     Indication: LUNG NEOPLASM MALIGNANT
     Dosage: FIRST CYCLE, DAY 1
     Route: 042
     Dates: start: 20110101
  5. CARBOPLATIN [Suspect]
     Dosage: SECOND CYCLE
     Route: 042
     Dates: start: 20111214, end: 20111214

REACTIONS (7)
  - DYSAESTHESIA [None]
  - PARAESTHESIA [None]
  - JOINT INSTABILITY [None]
  - DIZZINESS [None]
  - PARKINSON'S DISEASE [None]
  - MYALGIA [None]
  - FALL [None]
